FAERS Safety Report 17405974 (Version 1)
Quarter: 2020Q1

REPORT INFORMATION
  Report Type: Spontaneous
  Country: US (occurrence: US)
  Receive Date: 20200212
  Receipt Date: 20200212
  Transmission Date: 20200409
  Serious: No
  Sender: FDA-Public Use
  Company Number: US-ALLERGAN-1905216US

PATIENT
  Age: 39 Year
  Sex: Female
  Weight: 61.22 kg

DRUGS (3)
  1. MULTIVITAMIN [Concomitant]
     Active Substance: VITAMINS
     Dosage: UNK
  2. TAZAROTENE - BP [Suspect]
     Active Substance: TAZAROTENE
     Indication: ACNE
     Dosage: UNK UNK, QD
     Route: 061
     Dates: start: 201811
  3. TAZAROTENE - BP [Suspect]
     Active Substance: TAZAROTENE
     Indication: SKIN WRINKLING

REACTIONS (1)
  - Application site exfoliation [Recovering/Resolving]

NARRATIVE: CASE EVENT DATE: 201811
